FAERS Safety Report 9395774 (Version 1)
Quarter: 2013Q3

REPORT INFORMATION
  Report Type: Spontaneous
  Country: FR (occurrence: FR)
  Receive Date: 20130711
  Receipt Date: 20130711
  Transmission Date: 20140515
  Serious: Yes (Hospitalization, Other)
  Sender: FDA-Public Use
  Company Number: FR-PFIZER INC-2013200368

PATIENT
  Age: 87 Year
  Sex: Male

DRUGS (5)
  1. TRIATEC [Suspect]
     Indication: HYPERTENSION
     Dosage: 1.25 MG, DAILY
     Route: 048
     Dates: start: 201303, end: 20130603
  2. XARELTO [Suspect]
     Indication: SICK SINUS SYNDROME
     Dosage: 15 MG, DAILY
     Route: 048
     Dates: start: 20130116, end: 20130531
  3. AMLODIPINE [Concomitant]
     Indication: HYPERTENSION
     Dosage: UNK
  4. LASILIX [Concomitant]
     Indication: CARDIAC FAILURE
     Dosage: UNK
  5. FORLAX [Concomitant]
     Dosage: UNK

REACTIONS (4)
  - Thrombocytopenia [Recovered/Resolved]
  - Anaemia [Unknown]
  - Haematoma [Not Recovered/Not Resolved]
  - Hypovitaminosis [Unknown]
